FAERS Safety Report 23493187 (Version 2)
Quarter: 2024Q1

REPORT INFORMATION
  Report Type: Spontaneous
  Country: US (occurrence: US)
  Receive Date: 20240207
  Receipt Date: 20240228
  Transmission Date: 20240410
  Serious: Yes (Death, Hospitalization, Other)
  Sender: FDA-Public Use
  Company Number: US-TEVA-VS-3150961

PATIENT
  Age: 79 Year
  Sex: Male

DRUGS (7)
  1. LOVASTATIN [Suspect]
     Active Substance: LOVASTATIN
     Indication: Hyperlipidaemia
     Route: 065
  2. NIACIN [Suspect]
     Active Substance: NIACIN
     Indication: Hyperlipidaemia
     Dosage: EXTENDED-RELEASE
     Route: 065
  3. CARVEDILOL [Concomitant]
     Active Substance: CARVEDILOL
     Indication: Hypertension
     Route: 065
  4. ASPIRIN [Concomitant]
     Active Substance: ASPIRIN
     Indication: Coronary artery disease
     Route: 065
  5. ICOSAPENT ETHYL [Concomitant]
     Active Substance: ICOSAPENT ETHYL
     Indication: Hyperlipidaemia
     Route: 065
  6. SIMVASTATIN [Suspect]
     Active Substance: SIMVASTATIN
     Indication: Hyperlipidaemia
     Route: 065
  7. ATORVASTATIN [Suspect]
     Active Substance: ATORVASTATIN
     Indication: Hyperlipidaemia
     Route: 065

REACTIONS (10)
  - Hepatic cirrhosis [Fatal]
  - Portal hypertension [Unknown]
  - Malaise [Unknown]
  - Myalgia [Unknown]
  - Stupor [Fatal]
  - Ascites [Unknown]
  - Intentional product misuse [Fatal]
  - Hypotension [Fatal]
  - Hepatic encephalopathy [Unknown]
  - Varices oesophageal [Unknown]
